FAERS Safety Report 13699221 (Version 2)
Quarter: 2020Q1

REPORT INFORMATION
  Report Type: Report from Study
  Country: US (occurrence: US)
  Receive Date: 20170628
  Receipt Date: 20200218
  Transmission Date: 20200409
  Serious: No
  Sender: FDA-Public Use
  Company Number: US-JAZZ-2017-US-007352

PATIENT
  Sex: Female

DRUGS (11)
  1. ESTROGEL [Concomitant]
     Active Substance: ESTRADIOL
  2. XYREM [Suspect]
     Active Substance: SODIUM OXYBATE
     Dosage: 3.5 G, QD SECOND DOSE
     Route: 048
     Dates: start: 201606, end: 2016
  3. XYREM [Suspect]
     Active Substance: SODIUM OXYBATE
     Indication: NARCOLEPSY
     Dosage: 2.25 G, BID
     Route: 048
     Dates: start: 200708, end: 2007
  4. XYREM [Suspect]
     Active Substance: SODIUM OXYBATE
     Dosage: DOSE ADJUSTMENTS
     Route: 048
     Dates: start: 2007, end: 201606
  5. XYREM [Suspect]
     Active Substance: SODIUM OXYBATE
     Dosage: 4.25 G, QD FIRST DOSE
     Route: 048
     Dates: start: 201606
  6. PROGESTERONE. [Concomitant]
     Active Substance: PROGESTERONE
  7. ARMOUR THYROID [Concomitant]
     Active Substance: THYROID, PORCINE
  8. PROVIGIL [Concomitant]
     Active Substance: MODAFINIL
  9. RESTASIS [Concomitant]
     Active Substance: CYCLOSPORINE
  10. MURO 128 [Concomitant]
     Active Substance: SODIUM CHLORIDE
  11. NUVIGIL [Concomitant]
     Active Substance: ARMODAFINIL

REACTIONS (4)
  - Limb mass [Unknown]
  - Product dose omission [Unknown]
  - Hangover [Unknown]
  - Somnolence [Not Recovered/Not Resolved]
